FAERS Safety Report 8111674-6 (Version None)
Quarter: 2012Q1

REPORT INFORMATION
  Report Type: 
  Country: None (occurrence: None)
  Receive Date: 20120203
  Receipt Date: 20120123
  Transmission Date: 20120608
  Serious: Yes (Hospitalization, Disabling)
  Sender: FDA-Public Use
  Company Number: US-JNJFOC-20120110386

PATIENT
  Sex: Female
  Weight: 56.7 kg

DRUGS (4)
  1. MERCAPTOPURINE [Concomitant]
  2. REMICADE [Suspect]
     Route: 042
     Dates: start: 20030501
  3. MESALAMINE [Concomitant]
  4. REMICADE [Suspect]
     Indication: CROHN'S DISEASE
     Route: 042
     Dates: start: 20030417

REACTIONS (1)
  - BREAST CANCER STAGE I [None]
